FAERS Safety Report 9562932 (Version 2)
Quarter: 2013Q4

REPORT INFORMATION
  Report Type: Spontaneous
  Country: IT (occurrence: IT)
  Receive Date: 20130927
  Receipt Date: 20131017
  Transmission Date: 20140711
  Serious: Yes (Other)
  Sender: FDA-Public Use
  Company Number: IT-MYLANLABS-2013S1020900

PATIENT
  Age: 61 Year
  Sex: Female

DRUGS (2)
  1. QUETIAPINE [Suspect]
     Indication: PSYCHOTIC DISORDER
     Route: 048
     Dates: start: 20130426, end: 20130711
  2. DEPAKIN [Concomitant]
     Indication: MANIA
     Dates: start: 20061001, end: 20130730

REACTIONS (4)
  - Therapeutic response unexpected with drug substitution [Recovering/Resolving]
  - Insomnia [Recovering/Resolving]
  - Irritability [Recovering/Resolving]
  - Delirium [Recovering/Resolving]
